FAERS Safety Report 9483486 (Version 1)
Quarter: 2013Q3

REPORT INFORMATION
  Report Type: Spontaneous
  Country: US (occurrence: US)
  Receive Date: 20130828
  Receipt Date: 20130828
  Transmission Date: 20140515
  Serious: Yes (Death, Hospitalization, Other)
  Sender: FDA-Public Use
  Company Number: US-AMGEN-KDL271777

PATIENT
  Age: 61 Year
  Sex: Male

DRUGS (1)
  1. PROCRIT [Suspect]
     Indication: DIALYSIS
     Dosage: UNK UNK, UNK
     Route: 065
     Dates: end: 20080116

REACTIONS (4)
  - Death [Fatal]
  - Diabetes mellitus [Unknown]
  - Nephropathy [Unknown]
  - Depression [Unknown]
